FAERS Safety Report 12945172 (Version 1)
Quarter: 2016Q4

REPORT INFORMATION
  Report Type: Spontaneous
  Country: IT (occurrence: IT)
  Receive Date: 20161115
  Receipt Date: 20161115
  Transmission Date: 20170207
  Serious: Yes (Other)
  Sender: FDA-Public Use
  Company Number: IT-MYLANLABS-2016M1048293

PATIENT

DRUGS (9)
  1. PACLITAXEL. [Suspect]
     Active Substance: PACLITAXEL
     Indication: METAPLASTIC BREAST CARCINOMA
     Dosage: 60 MG, CYCLE
     Route: 042
     Dates: start: 20160718, end: 20160905
  2. OMEPRAZOLE. [Concomitant]
     Active Substance: OMEPRAZOLE
     Indication: PRODUCT USED FOR UNKNOWN INDICATION
     Dosage: 40 MG
  3. PACLITAXEL. [Suspect]
     Active Substance: PACLITAXEL
     Indication: METASTASES TO CENTRAL NERVOUS SYSTEM
  4. HERCEPTIN [Concomitant]
     Active Substance: TRASTUZUMAB
     Indication: METAPLASTIC BREAST CARCINOMA
     Dosage: 600 MG
     Route: 058
     Dates: start: 20160718, end: 20160905
  5. PERJETA [Concomitant]
     Active Substance: PERTUZUMAB
     Indication: METAPLASTIC BREAST CARCINOMA
     Dosage: 420 MG
     Route: 042
     Dates: start: 20160718, end: 20160905
  6. LASIX [Concomitant]
     Active Substance: FUROSEMIDE
     Indication: PRODUCT USED FOR UNKNOWN INDICATION
     Dosage: UNK
  7. PROPRANOLOL [Concomitant]
     Active Substance: PROPRANOLOL\PROPRANOLOL HYDROCHLORIDE
     Indication: PRODUCT USED FOR UNKNOWN INDICATION
     Dosage: UNK
  8. LAEVOLAC EPS [Concomitant]
     Indication: PRODUCT USED FOR UNKNOWN INDICATION
     Dosage: UNK
  9. NEBIVOLOL. [Concomitant]
     Active Substance: NEBIVOLOL
     Indication: PRODUCT USED FOR UNKNOWN INDICATION
     Dosage: UNK

REACTIONS (2)
  - Fall [Unknown]
  - Vertigo [Unknown]

NARRATIVE: CASE EVENT DATE: 20161001
